FAERS Safety Report 6843895-4 (Version None)
Quarter: 2010Q3

REPORT INFORMATION
  Report Type: 
  Country: None (occurrence: None)
  Receive Date: 20100715
  Receipt Date: 20100702
  Transmission Date: 20110219
  Serious: Yes (Other)
  Sender: FDA-Public Use
  Company Number: US-WATSON-2010-08928

PATIENT
  Sex: Female

DRUGS (3)
  1. RAMIPRIL (WATSON LABORATORIES) [Suspect]
     Indication: CARDIAC FAILURE CONGESTIVE
     Dosage: 10 MG, QAM
     Route: 048
     Dates: start: 20091201, end: 20100401
  2. RAMIPRIL (WATSON LABORATORIES) [Suspect]
     Indication: HYPERTENSION
  3. PLAVIX [Suspect]
     Indication: HAEMORRHAGE
     Dosage: 75 MG, DAILY
     Route: 048
     Dates: start: 20100401, end: 20100501

REACTIONS (12)
  - CEREBROVASCULAR ACCIDENT [None]
  - CONDITION AGGRAVATED [None]
  - DIZZINESS [None]
  - DRUG INTERACTION [None]
  - EPISTAXIS [None]
  - FATIGUE [None]
  - FEELING ABNORMAL [None]
  - HEADACHE [None]
  - MALAISE [None]
  - MUSCULAR WEAKNESS [None]
  - NAUSEA [None]
  - PAIN IN EXTREMITY [None]
